FAERS Safety Report 6237167-9 (Version None)
Quarter: 2009Q2

REPORT INFORMATION
  Report Type: 
  Country: None (occurrence: None)
  Receive Date: 20090619
  Receipt Date: 20090508
  Transmission Date: 20091009
  Serious: No
  Sender: FDA-Public Use
  Company Number: US-ASTRAZENECA-2009UW11843

PATIENT
  Age: 62 Year
  Sex: Male

DRUGS (5)
  1. SYMBICORT [Suspect]
     Dosage: 160/4.5  UNKNOWN
     Route: 055
     Dates: start: 20090301
  2. ATENOLOL [Concomitant]
  3. PATANOL [Concomitant]
  4. OXYCODONE HCL [Concomitant]
  5. SPIRIVA [Concomitant]

REACTIONS (3)
  - APHONIA [None]
  - COUGH [None]
  - ORAL PAIN [None]
